FAERS Safety Report 19415592 (Version 1)
Quarter: 2021Q2

REPORT INFORMATION
  Report Type: Spontaneous
  Country: US (occurrence: US)
  Receive Date: 20210614
  Receipt Date: 20210614
  Transmission Date: 20210717
  Serious: Yes (Hospitalization)
  Sender: FDA-Public Use
  Company Number: None

PATIENT
  Age: 63 Year
  Sex: Male

DRUGS (16)
  1. ROSUVASTATIN. [Concomitant]
     Active Substance: ROSUVASTATIN
  2. CAPECITABINE. [Suspect]
     Active Substance: CAPECITABINE
     Indication: GALLBLADDER CANCER
     Dosage: ?          OTHER FREQUENCY:2 WKS ON 1 WK OFF;?
     Route: 048
     Dates: start: 20210525
  3. DESMOPRESSIN [Concomitant]
     Active Substance: DESMOPRESSIN
  4. TRAZODONE [Concomitant]
     Active Substance: TRAZODONE HYDROCHLORIDE
  5. METFORMIN [Concomitant]
     Active Substance: METFORMIN HYDROCHLORIDE
  6. AMLODIPINE [Concomitant]
     Active Substance: AMLODIPINE BESYLATE
  7. FARXIGA [Concomitant]
     Active Substance: DAPAGLIFLOZIN PROPANEDIOL
  8. JANUVIA [Concomitant]
     Active Substance: SITAGLIPTIN PHOSPHATE
  9. PROCTOZONE [Concomitant]
     Active Substance: HYDROCORTISONE
  10. INSULIN [Concomitant]
     Active Substance: INSULIN NOS
  11. ASPIRIN. [Concomitant]
     Active Substance: ASPIRIN
  12. LANTUS [Concomitant]
     Active Substance: INSULIN GLARGINE
  13. BYSTOLIC [Concomitant]
     Active Substance: NEBIVOLOL HYDROCHLORIDE
  14. CLOBETASOL [Concomitant]
     Active Substance: CLOBETASOL
  15. PREDNISONE. [Concomitant]
     Active Substance: PREDNISONE
  16. REPAGLINIDE. [Concomitant]
     Active Substance: REPAGLINIDE

REACTIONS (3)
  - Dyspnoea [None]
  - Rash [None]
  - Burning sensation [None]

NARRATIVE: CASE EVENT DATE: 20210613
